FAERS Safety Report 20785962 (Version 2)
Quarter: 2023Q2

REPORT INFORMATION
  Report Type: Spontaneous
  Country: US (occurrence: None)
  Receive Date: 20220504
  Receipt Date: 20230511
  Transmission Date: 20230721
  Serious: No
  Sender: FDA-Public Use
  Company Number: US-ROCHE-2995453

PATIENT
  Age: 23 Year
  Sex: Female
  Weight: 72.640 kg

DRUGS (1)
  1. OCRELIZUMAB [Suspect]
     Active Substance: OCRELIZUMAB
     Indication: Product used for unknown indication
     Route: 065
     Dates: start: 202103, end: 202107

REACTIONS (1)
  - Maternal exposure during pregnancy [Unknown]
